FAERS Safety Report 21633311 (Version 1)
Quarter: 2022Q4

REPORT INFORMATION
  Report Type: Spontaneous
  Country: US (occurrence: None)
  Receive Date: 20221122
  Receipt Date: 20221122
  Transmission Date: 20230112
  Serious: No
  Sender: FDA-Public Use
  Company Number: None

PATIENT
  Sex: Female

DRUGS (1)
  1. COSENTYX [Suspect]
     Active Substance: SECUKINUMAB
     Indication: Ankylosing spondylitis
     Dosage: FREQUENCY : MONTHLY;?
     Route: 058
     Dates: start: 20221020

REACTIONS (8)
  - Drug ineffective [None]
  - Pain in extremity [None]
  - Pain in extremity [None]
  - Back pain [None]
  - Arthralgia [None]
  - Inflammation [None]
  - Constipation [None]
  - Rash [None]
